FAERS Safety Report 14907901 (Version 1)
Quarter: 2018Q2

REPORT INFORMATION
  Report Type: Spontaneous
  Country: US (occurrence: US)
  Receive Date: 20180429
  Receipt Date: 20180429
  Transmission Date: 20180711
  Serious: Yes (Other)
  Sender: FDA-Public Use
  Company Number: None

PATIENT
  Age: 61 Year
  Sex: Female
  Weight: 81 kg

DRUGS (1)
  1. WAL-PHED [Suspect]
     Active Substance: PSEUDOEPHEDRINE HYDROCHLORIDE
     Indication: PULMONARY CONGESTION
     Route: 048

REACTIONS (4)
  - Product quality issue [None]
  - Poor quality sleep [None]
  - Feeling jittery [None]
  - Faeces discoloured [None]

NARRATIVE: CASE EVENT DATE: 20180402
